FAERS Safety Report 5241759-3 (Version None)
Quarter: 2007Q1

REPORT INFORMATION
  Report Type: 
  Country: None (occurrence: None)
  Receive Date: 20070220
  Receipt Date: 20070214
  Transmission Date: 20070707
  Serious: Yes (Death, Hospitalization)
  Sender: FDA-Public Use
  Company Number: US-ROCHE-482751

PATIENT
  Age: 16 Year
  Sex: Female

DRUGS (1)
  1. TAMIFLU [Suspect]
     Route: 048
     Dates: start: 20070205

REACTIONS (3)
  - AGGRESSION [None]
  - DEATH [None]
  - DISSEMINATED INTRAVASCULAR COAGULATION [None]
